FAERS Safety Report 4887871-X (Version None)
Quarter: 2006Q1

REPORT INFORMATION
  Report Type: 
  Country: None (occurrence: None)
  Receive Date: 20060119
  Receipt Date: 20051130
  Transmission Date: 20060701
  Serious: Yes (Hospitalization)
  Sender: FDA-Public Use
  Company Number: 221100

PATIENT
  Age: 58 Year
  Sex: Female
  Weight: 93 kg

DRUGS (9)
  1. HERCEPTIN [Suspect]
     Indication: BREAST CANCER
     Dosage: 2 MG/KG, Q3W, INTRAVENOUS
     Route: 042
     Dates: start: 20050823, end: 20051126
  2. TAXOTERE [Suspect]
     Indication: BREAST CANCER
     Dosage: 35 MG/M2, Q3W, INTRAVENOUS
     Route: 042
     Dates: start: 20051116, end: 20051116
  3. CAPECITABINE (CAPECITABINE) [Suspect]
     Indication: BREAST CANCER
     Dosage: 1850 MG, BID, ORAL
     Route: 048
     Dates: start: 20051116, end: 20051126
  4. CAPECITABINE (CAPECITABINE) [Suspect]
  5. ZOLOFT [Concomitant]
  6. NEXIUM [Concomitant]
  7. GABAPENTIN [Concomitant]
  8. LORAZEPAM [Concomitant]
  9. VAGIFEM [Concomitant]

REACTIONS (4)
  - ASTHENIA [None]
  - DIARRHOEA [None]
  - EPISTAXIS [None]
  - HAEMORRHOIDAL HAEMORRHAGE [None]
